FAERS Safety Report 21458856 (Version 1)
Quarter: 2022Q4

REPORT INFORMATION
  Report Type: Report from Study
  Country: CA (occurrence: CA)
  Receive Date: 20221014
  Receipt Date: 20221014
  Transmission Date: 20230112
  Serious: Yes (Hospitalization)
  Sender: FDA-Public Use
  Company Number: CA-HLS-202201865

PATIENT
  Age: 60 Year
  Sex: Male

DRUGS (2)
  1. CLOZARIL [Suspect]
     Active Substance: CLOZAPINE
     Indication: Product used for unknown indication
     Dosage: CLOZARIL, FROM SEPT 28 TO OCTOBER 6 2011, THE MAXIMUM DOSE WAS 37.5 MG.??DRUG START DATE: 23-SEP-201
     Route: 048
     Dates: end: 20111006
  2. EPIVAL [Concomitant]
     Active Substance: DIVALPROEX SODIUM
     Indication: Product used for unknown indication
     Dosage: DISCONTINUED 1 WEEK PRIOR CBC ON 04-OCT-2022
     Route: 065

REACTIONS (8)
  - Neutropenia [Unknown]
  - Lymphocyte count decreased [Unknown]
  - Monocyte count increased [Unknown]
  - Platelet count decreased [Recovered/Resolved]
  - Blood prolactin increased [Unknown]
  - Anaemia [Unknown]
  - Blood thyroid stimulating hormone [Unknown]
  - Leukopenia [Unknown]

NARRATIVE: CASE EVENT DATE: 20100610
